FAERS Safety Report 8276206-0 (Version None)
Quarter: 2012Q2

REPORT INFORMATION
  Report Type: 
  Country: None (occurrence: None)
  Receive Date: 20120412
  Receipt Date: 20120406
  Transmission Date: 20120825
  Serious: Yes (Death, Hospitalization)
  Sender: FDA-Public Use
  Company Number: FR-ASTELLAS-2012EU002655

PATIENT
  Age: 55 Year
  Sex: Male

DRUGS (3)
  1. PROGRAF [Suspect]
     Indication: RENAL AND PANCREAS TRANSPLANT
     Dosage: UNK
     Route: 042
     Dates: start: 20120309
  2. PROGRAF [Suspect]
     Dosage: 1 MG, BID
     Route: 042
     Dates: start: 20120310, end: 20120311
  3. PROGRAF [Suspect]
     Dosage: 1 MG, BID
     Route: 042
     Dates: end: 20120312

REACTIONS (1)
  - ENCEPHALOPATHY [None]
